FAERS Safety Report 12934510 (Version 1)
Quarter: 2016Q4

REPORT INFORMATION
  Report Type: Report from Study
  Country: CO (occurrence: CO)
  Receive Date: 20161111
  Receipt Date: 20161111
  Transmission Date: 20170207
  Serious: Yes (Other)
  Sender: FDA-Public Use
  Company Number: CO-JNJFOC-20161105263

PATIENT
  Age: 54 Year
  Sex: Male
  Weight: 99 kg

DRUGS (1)
  1. STELARA [Suspect]
     Active Substance: USTEKINUMAB
     Indication: PSORIASIS
     Dosage: ALSO CONFLICTINGLY REPORTED AS 2013
     Route: 058
     Dates: start: 20120101

REACTIONS (1)
  - Fungal oesophagitis [Unknown]

NARRATIVE: CASE EVENT DATE: 20160601
